FAERS Safety Report 7296312-7 (Version None)
Quarter: 2011Q1

REPORT INFORMATION
  Report Type: 
  Country: None (occurrence: None)
  Receive Date: 20110211
  Receipt Date: 20110211
  Transmission Date: 20110831
  Serious: No
  Sender: FDA-Public Use
  Company Number: None

PATIENT
  Age: 46 Year
  Sex: Male

DRUGS (1)
  1. ATAZANAVIR [Suspect]
     Indication: HIV INFECTION
     Dates: start: 20060525, end: 20100604

REACTIONS (3)
  - JAUNDICE [None]
  - HAEMOLYTIC ANAEMIA [None]
  - ANAEMIA [None]
